FAERS Safety Report 11981123 (Version 1)
Quarter: 2016Q1

REPORT INFORMATION
  Report Type: Report from Study
  Country: IL (occurrence: IL)
  Receive Date: 20160129
  Receipt Date: 20160129
  Transmission Date: 20160526
  Serious: Yes (Other)
  Sender: FDA-Public Use
  Company Number: IL-BAXTER-2016BAX005252

PATIENT

DRUGS (7)
  1. ENDOXAN-1G [Suspect]
     Active Substance: CYCLOPHOSPHAMIDE
     Indication: EWING^S SARCOMA
     Dosage: 4.2 G/M2/COURSE (FOR 1 HOUR)
     Route: 041
  2. DOXORUBICIN [Suspect]
     Active Substance: DOXORUBICIN
     Indication: EWING^S SARCOMA
     Dosage: 75 MG/M2 PER COURSE (OVER 15 MIN)
     Route: 041
  3. IFOSFAMIDE. [Suspect]
     Active Substance: IFOSFAMIDE
     Indication: EWING^S SARCOMA
     Dosage: 9G/M^2/COURSE (OVER 1 HOUR)
     Route: 041
  4. VINCRISTINE [Suspect]
     Active Substance: VINCRISTINE
     Indication: EWING^S SARCOMA
     Dosage: 2 MG/M2/COURSE (MAX. DOSE 2 MG)
     Route: 042
  5. ETOPOSIDE. [Suspect]
     Active Substance: ETOPOSIDE
     Indication: EWING^S SARCOMA
     Dosage: 500MG/M^2/COURSE (I.V OVER 1 HOUR)
     Route: 041
  6. UROMITEXAN 400 MG [Suspect]
     Active Substance: MESNA
     Indication: EWING^S SARCOMA
     Route: 065
  7. DEXRAZOXANE. [Suspect]
     Active Substance: DEXRAZOXANE
     Indication: EWING^S SARCOMA
     Route: 042

REACTIONS (1)
  - Disease progression [Unknown]
